FAERS Safety Report 8858761 (Version 1)
Quarter: 2012Q4

REPORT INFORMATION
  Report Type: Spontaneous
  Country: US (occurrence: None)
  Receive Date: 20121019
  Receipt Date: 20121019
  Transmission Date: 20130627
  Serious: Yes (Other)
  Sender: FDA-Public Use
  Company Number: US-GDP-12414515

PATIENT

DRUGS (1)
  1. ORACEA [Suspect]
     Indication: PRODUCT USED FOR UNKNOWN INDICATION
     Dosage: (Oral)
     Route: 048

REACTIONS (1)
  - Clostridium difficile infection [None]
